FAERS Safety Report 9779789 (Version 3)
Quarter: 2013Q4

REPORT INFORMATION
  Report Type: Report from Study
  Country: FR (occurrence: FR)
  Receive Date: 20131223
  Receipt Date: 20131227
  Transmission Date: 20140711
  Serious: Yes (Hospitalization)
  Sender: FDA-Public Use
  Company Number: PHHO2013FR015912

PATIENT
  Sex: 0

DRUGS (13)
  1. QGE031 [Suspect]
     Indication: PEMPHIGOID
     Dosage: 240 MG, (2X120 MG/1ML) Q2 WEEKS
     Route: 058
     Dates: start: 20131030, end: 20131115
  2. BURINEX [Concomitant]
     Indication: HYPERTENSION
     Dosage: UNK
     Dates: start: 20130824
  3. OSTRAM [Concomitant]
     Dosage: UNK
     Dates: start: 20131009
  4. ATARAX [Concomitant]
     Indication: PRURITUS
     Dosage: 25
     Dates: start: 20131009
  5. SYMBICORT [Concomitant]
     Indication: ASTHMA
     Dosage: 400 / TWICE PER DAY
     Dates: start: 20130701
  6. PLAVIX [Concomitant]
     Indication: HYPERTENSION
     Dosage: 75 / ONCE PER DAY
     Dates: start: 201212
  7. AERIUS [Concomitant]
     Indication: PRURITUS
     Dosage: UNK
     Dates: start: 20130502
  8. DIFFU-K [Concomitant]
     Dosage: 2/DAY
     Dates: start: 20131009
  9. ODRIK [Concomitant]
     Indication: HYPERTENSION
     Dosage: 2 MG, QD
  10. TARKA LP [Concomitant]
     Indication: HYPERTENSION
     Dosage: UNK
     Dates: start: 201202
  11. FENOFIBRATE [Concomitant]
     Indication: HYPERCHOLESTEROLAEMIA
     Dosage: 160 / ONCE PER DAY
  12. INEXIUM//ESOMEPRAZOLE MAGNESIUM [Concomitant]
     Dosage: UNK
     Dates: start: 201308
  13. CORTANCYL [Concomitant]
     Dosage: 30 MG, QD
     Dates: start: 20131009

REACTIONS (1)
  - Pemphigoid [Recovering/Resolving]
